FAERS Safety Report 4885979-6 (Version None)
Quarter: 2006Q1

REPORT INFORMATION
  Report Type: 
  Country: None (occurrence: None)
  Receive Date: 20060117
  Receipt Date: 20050728
  Transmission Date: 20060701
  Serious: Yes (Death)
  Sender: FDA-Public Use
  Company Number: 2006-CZ-00278

PATIENT
  Sex: Male

DRUGS (2)
  1. PREDNISOLONE TAB [Suspect]
     Indication: ROSACEA
     Dosage: 35 MG, TRANSPLACENTAL
     Route: 064
  2. ERYTHROMOYCIN TABLETS 250MG (ERYTHROMYCIN) [Suspect]
     Indication: ROSACEA
     Dosage: 1500 MG, 3 IN 1 D, TRANSPLACENTAL
     Route: 064

REACTIONS (6)
  - CAESAREAN SECTION [None]
  - DRUG EXPOSURE DURING PREGNANCY [None]
  - FOETAL ARRHYTHMIA [None]
  - FOETAL MOVEMENTS DECREASED [None]
  - INTRA-UTERINE DEATH [None]
  - OLIGOHYDRAMNIOS [None]
